FAERS Safety Report 7312476-0 (Version None)
Quarter: 2011Q1

REPORT INFORMATION
  Report Type: 
  Country: None (occurrence: None)
  Receive Date: 20110224
  Receipt Date: 20110218
  Transmission Date: 20110831
  Serious: Yes (Death, Hospitalization)
  Sender: FDA-Public Use
  Company Number: JP-ROCHE-752800

PATIENT
  Sex: Male

DRUGS (26)
  1. TOCILIZUMAB [Suspect]
     Indication: JUVENILE ARTHRITIS
     Route: 041
     Dates: start: 20101109, end: 20101228
  2. DEXAMETHASONE PALMITATE [Concomitant]
     Route: 041
     Dates: start: 20101201, end: 20101209
  3. METHYLPREDNISOLONE [Concomitant]
     Route: 042
  4. NEORAL [Concomitant]
     Route: 048
     Dates: start: 20101013, end: 20101018
  5. SANDIMMUNE [Suspect]
     Route: 041
     Dates: start: 20101119, end: 20101122
  6. DEXAMETHASONE PALMITATE [Concomitant]
     Route: 041
     Dates: start: 20101026, end: 20101030
  7. DEXAMETHASONE PALMITATE [Concomitant]
     Route: 041
     Dates: start: 20101210, end: 20101220
  8. DIDRONEL [Concomitant]
     Route: 048
     Dates: start: 20101210, end: 20101224
  9. SANDIMMUNE [Suspect]
     Indication: JUVENILE ARTHRITIS
     Route: 041
     Dates: start: 20100924, end: 20100926
  10. PREDONINE [Concomitant]
     Route: 048
     Dates: start: 20101221, end: 20110103
  11. DEXAMETHASONE PALMITATE [Concomitant]
     Route: 041
  12. NEORAL [Concomitant]
     Route: 048
     Dates: start: 20101211, end: 20110104
  13. SANDIMMUNE [Suspect]
     Route: 041
     Dates: start: 20101004
  14. DEXAMETHASONE PALMITATE [Concomitant]
     Route: 041
     Dates: start: 20101019, end: 20101024
  15. URSO 250 [Concomitant]
     Route: 048
     Dates: start: 20101211, end: 20110103
  16. NEORAL [Concomitant]
     Dosage: PERORAL LIQUID PREPARATION
     Route: 048
     Dates: start: 20101005, end: 20101007
  17. SANDIMMUNE [Suspect]
     Route: 041
     Dates: start: 20101123, end: 20101210
  18. DEXAMETHASONE PALMITATE [Concomitant]
     Route: 041
     Dates: start: 20101025, end: 20101025
  19. SANDIMMUNE [Suspect]
     Route: 041
     Dates: start: 20100927
  20. PREDONINE [Concomitant]
     Route: 048
     Dates: start: 20101001, end: 20101118
  21. DEXAMETHASONE PALMITATE [Concomitant]
     Route: 041
     Dates: start: 20101221, end: 20101227
  22. DEXAMETHASONE PALMITATE [Concomitant]
     Route: 041
     Dates: start: 20101228, end: 20110103
  23. FAMOTIDINE [Concomitant]
     Route: 048
     Dates: start: 20100910, end: 20110103
  24. RENIVEZE [Concomitant]
     Route: 048
     Dates: start: 20101008, end: 20110103
  25. NEORAL [Concomitant]
     Route: 048
     Dates: start: 20101008, end: 20101012
  26. DIDRONEL [Concomitant]
     Route: 048
     Dates: start: 20101210, end: 20101224

REACTIONS (4)
  - TOXIC ENCEPHALOPATHY [None]
  - MULTI-ORGAN FAILURE [None]
  - HISTIOCYTOSIS HAEMATOPHAGIC [None]
  - RHEUMATOID VASCULITIS [None]
